FAERS Safety Report 7241359-X (Version None)
Quarter: 2011Q1

REPORT INFORMATION
  Report Type: 
  Country: None (occurrence: None)
  Receive Date: 20110120
  Receipt Date: 20110120
  Transmission Date: 20110831
  Serious: Yes (Death, Hospitalization)
  Sender: FDA-Public Use
  Company Number: None

PATIENT
  Sex: Female
  Weight: 62 kg

DRUGS (1)
  1. DRONEDARONE HCL [Suspect]
     Indication: ATRIAL FIBRILLATION
     Dosage: 400MG BID PO
     Route: 048
     Dates: start: 20100918, end: 20101021

REACTIONS (3)
  - ACUTE HEPATIC FAILURE [None]
  - PLEURAL EFFUSION [None]
  - HEPATIC CIRRHOSIS [None]
